FAERS Safety Report 12180952 (Version 3)
Quarter: 2016Q3

REPORT INFORMATION
  Report Type: Spontaneous
  Country: US (occurrence: US)
  Receive Date: 20160315
  Receipt Date: 20160711
  Transmission Date: 20161109
  Serious: No
  Sender: FDA-Public Use
  Company Number: US-PFIZER INC-2016112074

PATIENT
  Age: 49 Year
  Sex: Female
  Weight: 83.91 kg

DRUGS (5)
  1. LYRICA [Suspect]
     Active Substance: PREGABALIN
     Dosage: 75MG TWICE DAILY
     Dates: end: 20160208
  2. LYRICA [Suspect]
     Active Substance: PREGABALIN
     Indication: NEUROPATHY PERIPHERAL
     Dosage: 25MG TWICE DAILY CAPSULE BY MOUTH
     Route: 048
     Dates: start: 20160119
  3. LYRICA [Suspect]
     Active Substance: PREGABALIN
     Dosage: 50 MG, UNK
  4. TAMOXIFEN [Concomitant]
     Active Substance: TAMOXIFEN
     Dosage: 20 MG, 1X/DAY
     Dates: start: 201104
  5. TAMOXIFEN [Concomitant]
     Active Substance: TAMOXIFEN
     Indication: BREAST CANCER
     Dosage: 100 MG, DAILY
     Route: 048

REACTIONS (3)
  - Fatigue [Recovered/Resolved]
  - Product use issue [Not Recovered/Not Resolved]
  - Somnolence [Recovered/Resolved]

NARRATIVE: CASE EVENT DATE: 20160119
